FAERS Safety Report 7319932-X (Version None)
Quarter: 2011Q1

REPORT INFORMATION
  Report Type: 
  Country: None (occurrence: None)
  Receive Date: 20110228
  Receipt Date: 20101215
  Transmission Date: 20110831
  Serious: No
  Sender: FDA-Public Use
  Company Number: A0899934A

PATIENT
  Age: 65 Year
  Sex: Female

DRUGS (5)
  1. ALENDRONATE [Concomitant]
  2. SIMVASTATIN [Concomitant]
  3. LAMOTRIGINE [Suspect]
     Indication: BIPOLAR DISORDER
     Dosage: 150MG AT NIGHT
     Route: 048
     Dates: start: 20101001
  4. TRIAMTERENE AND HYDROCHLOROTHIAZIDE [Concomitant]
  5. VITAMIN D [Concomitant]

REACTIONS (1)
  - ALOPECIA [None]
